FAERS Safety Report 20498764 (Version 1)
Quarter: 2022Q1

REPORT INFORMATION
  Report Type: Report from Study
  Country: US (occurrence: US)
  Receive Date: 20220222
  Receipt Date: 20220222
  Transmission Date: 20220423
  Serious: Yes (Hospitalization, Other)
  Sender: FDA-Public Use
  Company Number: US-BoehringerIngelheim-2022-BI-106594

PATIENT
  Age: 49 Year
  Sex: Male

DRUGS (4)
  1. OFEV [Suspect]
     Active Substance: NINTEDANIB
     Indication: Pulmonary arterial hypertension
     Route: 048
     Dates: start: 20200413
  2. OFEV [Suspect]
     Active Substance: NINTEDANIB
     Route: 048
     Dates: start: 202005
  3. ENBREL [Concomitant]
     Active Substance: ETANERCEPT
     Indication: Crohn^s disease
     Route: 058
     Dates: start: 202106
  4. TYVASO [Concomitant]
     Active Substance: TREPROSTINIL
     Indication: Pulmonary arterial hypertension
     Dosage: 9 BREATHS
     Route: 055
     Dates: start: 202101

REACTIONS (2)
  - Lung transplant [Recovered/Resolved]
  - Off label use [Unknown]
